FAERS Safety Report 24034301 (Version 2)
Quarter: 2024Q3

REPORT INFORMATION
  Report Type: Spontaneous
  Country: CZ (occurrence: CZ)
  Receive Date: 20240701
  Receipt Date: 20240809
  Transmission Date: 20241016
  Serious: Yes (Hospitalization, Other)
  Sender: EXELIXIS
  Company Number: CZ-IPSEN Group, Research and Development-2024-12498

PATIENT
  Age: 76 Year
  Sex: Male
  Weight: 70 kg

DRUGS (7)
  1. CABOMETYX [Suspect]
     Active Substance: CABOZANTINIB S-MALATE
     Indication: Clear cell renal cell carcinoma
     Dosage: 60 MG, QD (FIRST LINE)
     Route: 048
     Dates: start: 20220909, end: 20220921
  2. CABOMETYX [Suspect]
     Active Substance: CABOZANTINIB S-MALATE
     Dosage: 40 MG (LINE ONE)
     Route: 048
     Dates: start: 20221021
  3. CABOMETYX [Suspect]
     Active Substance: CABOZANTINIB S-MALATE
     Dosage: 20 MG, QD (LINE ONE)
     Route: 048
     Dates: start: 20221104, end: 20240612
  4. TELMISARTAN [Concomitant]
     Active Substance: TELMISARTAN
     Indication: Hypertension
     Dosage: 1-0-0
  5. BETAXOLOL [Concomitant]
     Active Substance: BETAXOLOL
     Indication: Hypertension
     Dosage: 1-0-0
  6. AMLODIPINE BESYLATE [Concomitant]
     Active Substance: AMLODIPINE BESYLATE
     Indication: Hypertension
     Dosage: 1-0-0
  7. DICLOFENAC [Concomitant]
     Active Substance: DICLOFENAC
     Indication: Pain
     Dosage: OCCASIONALLY IN CASE OF PAIN SOS (TAKEN MINIMALLY)

REACTIONS (6)
  - Ureteric obstruction [Unknown]
  - Renal failure [Unknown]
  - Hepatotoxicity [Unknown]
  - Renal failure [Unknown]
  - Blood pressure systolic increased [Unknown]
  - Malignant neoplasm progression [Unknown]

NARRATIVE: CASE EVENT DATE: 20220922
